FAERS Safety Report 11754931 (Version 1)
Quarter: 2015Q4

REPORT INFORMATION
  Report Type: Report from Study
  Country: US (occurrence: US)
  Receive Date: 20151119
  Receipt Date: 20151119
  Transmission Date: 20160304
  Serious: Yes (Hospitalization, Other)
  Sender: FDA-Public Use
  Company Number: US-BAYER-2015-444189

PATIENT
  Age: 55 Year
  Sex: Male
  Weight: 113.4 kg

DRUGS (4)
  1. AMLODIPINE [Concomitant]
     Active Substance: AMLODIPINE BESYLATE
  2. METOPROLOL [Concomitant]
     Active Substance: METOPROLOL
  3. KLOR-CON [Concomitant]
     Active Substance: POTASSIUM CHLORIDE
  4. STIVARGA [Suspect]
     Active Substance: REGORAFENIB
     Indication: COLORECTAL CANCER METASTATIC
     Dosage: 160 MG, QD
     Route: 048
     Dates: start: 20151007, end: 20151007

REACTIONS (12)
  - Hyponatraemia [None]
  - Nausea [None]
  - Metastases to lung [Not Recovered/Not Resolved]
  - Diarrhoea [None]
  - Weight decreased [None]
  - Back pain [None]
  - Decreased appetite [None]
  - Vomiting [None]
  - Fatigue [None]
  - Abdominal pain [None]
  - Dehydration [None]
  - General physical condition abnormal [None]

NARRATIVE: CASE EVENT DATE: 2015
